FAERS Safety Report 6287663-3 (Version None)
Quarter: 2009Q3

REPORT INFORMATION
  Report Type: 
  Country: None (occurrence: None)
  Receive Date: 20090717
  Receipt Date: 20080711
  Transmission Date: 20100115
  Serious: Yes (Hospitalization, Other)
  Sender: FDA-Public Use
  Company Number: 2008SP014145

PATIENT
  Age: 79 Year
  Sex: Male
  Weight: 90.7194 kg

DRUGS (9)
  1. INTEGRILIN [Suspect]
     Indication: ANGIOPLASTY
     Dosage: IV
     Route: 042
     Dates: start: 20080709, end: 20080710
  2. HEPARIN [Suspect]
     Indication: ANGIOPLASTY
     Dosage: INCOR
     Dates: start: 20080709
  3. ASPIRIN [Suspect]
     Indication: DRUG USE FOR UNKNOWN INDICATION
  4. NEURONTIN [Concomitant]
  5. CARBAMAZEPINE [Concomitant]
  6. LISINOPRIL [Concomitant]
  7. CRESTOR [Concomitant]
  8. TRAMADOL HCL [Concomitant]
  9. ASPIRIN [Concomitant]

REACTIONS (1)
  - THROMBOCYTOPENIA [None]
